FAERS Safety Report 7680587-6 (Version None)
Quarter: 2011Q3

REPORT INFORMATION
  Report Type: 
  Country: None (occurrence: None)
  Receive Date: 20110812
  Receipt Date: 20110810
  Transmission Date: 20111222
  Serious: Yes (Life-Threatening, Hospitalization)
  Sender: FDA-Public Use
  Company Number: DE-SANOFI-AVENTIS-2011SA022605

PATIENT
  Age: 53 Year
  Sex: Male
  Weight: 130 kg

DRUGS (5)
  1. METOPROLOL SUCCINATE [Concomitant]
     Dosage: 2/3 AND 1/3 OF DOSAGE FORM DAILY
     Route: 048
  2. MULTAQ [Suspect]
     Indication: ATRIAL FIBRILLATION
     Route: 048
     Dates: start: 20100924, end: 20101207
  3. RAMIPRIL [Concomitant]
     Dosage: A HALF DOSAGE FORM TWICE DAILY
     Route: 048
  4. DIGIMERCK [Concomitant]
     Route: 048
  5. TORSEMIDE [Concomitant]
     Dosage: 2-1-0
     Route: 048

REACTIONS (2)
  - UNDERDOSE [None]
  - TORSADE DE POINTES [None]
